FAERS Safety Report 21230830 (Version 2)
Quarter: 2022Q3

REPORT INFORMATION
  Report Type: Spontaneous
  Country: US (occurrence: US)
  Receive Date: 20220819
  Receipt Date: 20220911
  Transmission Date: 20221027
  Serious: No
  Sender: FDA-Public Use
  Company Number: US-SA-SAC20220715000584

PATIENT
  Age: 41 Year
  Sex: Female

DRUGS (2)
  1. DUPIXENT [Suspect]
     Active Substance: DUPILUMAB
     Indication: Dermatitis atopic
     Dosage: 600 MG, 1X
     Route: 058
     Dates: start: 20220706, end: 20220706
  2. DUPIXENT [Suspect]
     Active Substance: DUPILUMAB
     Indication: Intrauterine contraception
     Dosage: 300 MG, QOW
     Route: 058
     Dates: start: 202207

REACTIONS (4)
  - Weight increased [Unknown]
  - Alopecia [Unknown]
  - Fluid retention [Unknown]
  - Product use in unapproved indication [Unknown]

NARRATIVE: CASE EVENT DATE: 20220706
